FAERS Safety Report 4772867-9 (Version None)
Quarter: 2005Q3

REPORT INFORMATION
  Report Type: 
  Country: None (occurrence: None)
  Receive Date: 20050916
  Receipt Date: 20050902
  Transmission Date: 20060218
  Serious: Yes (Hospitalization)
  Sender: FDA-Public Use
  Company Number: 230030M05FRA

PATIENT
  Age: 24 Year
  Sex: Male

DRUGS (1)
  1. REBIF [Suspect]
     Indication: MULTIPLE SCLEROSIS
     Dates: start: 20040401, end: 20041201

REACTIONS (6)
  - ABNORMAL BEHAVIOUR [None]
  - BIPOLAR DISORDER [None]
  - BRIEF PSYCHOTIC DISORDER WITH MARKED STRESSORS [None]
  - CONFUSIONAL STATE [None]
  - DELUSION [None]
  - DEPRESSION [None]
